FAERS Safety Report 15955284 (Version 1)
Quarter: 2019Q1

REPORT INFORMATION
  Report Type: Spontaneous
  Country: US (occurrence: US)
  Receive Date: 20190212
  Receipt Date: 20190212
  Transmission Date: 20190417
  Serious: Yes (Death)
  Sender: FDA-Public Use
  Company Number: None

PATIENT
  Age: 30 Year
  Sex: Male

DRUGS (8)
  1. GABAPENTIN. [Concomitant]
     Active Substance: GABAPENTIN
  2. DIAZEPAM. [Concomitant]
     Active Substance: DIAZEPAM
  3. BUPROPION. [Concomitant]
     Active Substance: BUPROPION
  4. KRATOM [Suspect]
     Active Substance: HERBALS\MITRAGYNINE
  5. ETIZOLAM [Suspect]
     Active Substance: ETIZOLAM
  6. CLONIDINE. [Concomitant]
     Active Substance: CLONIDINE
  7. HYDROXYZINE [Concomitant]
     Active Substance: HYDROXYZINE HYDROCHLORIDE
  8. NALTREXONE [Concomitant]
     Active Substance: NALTREXONE

REACTIONS (1)
  - Death [None]

NARRATIVE: CASE EVENT DATE: 20160711
